FAERS Safety Report 20347502 (Version 1)
Quarter: 2022Q1

REPORT INFORMATION
  Report Type: Spontaneous
  Country: US (occurrence: None)
  Receive Date: 20220117
  Receipt Date: 20220117
  Transmission Date: 20220423
  Serious: Yes (Other)
  Sender: FDA-Public Use
  Company Number: None

PATIENT
  Age: 31 Year
  Sex: Female
  Weight: 56.6 kg

DRUGS (1)
  1. SOTROVIMAB [Suspect]
     Active Substance: SOTROVIMAB
     Indication: COVID-19 treatment
     Route: 042
     Dates: start: 20220110, end: 20220110

REACTIONS (2)
  - Palpitations [None]
  - Headache [None]

NARRATIVE: CASE EVENT DATE: 20220117
